FAERS Safety Report 7828931-0 (Version None)
Quarter: 2011Q4

REPORT INFORMATION
  Report Type: 
  Country: None (occurrence: None)
  Receive Date: 20111020
  Receipt Date: 20110707
  Transmission Date: 20120403
  Serious: No
  Sender: FDA-Public Use
  Company Number: US-BAYER-2011-059159

PATIENT
  Age: 72 Year
  Sex: Male

DRUGS (2)
  1. HEART MEDICATION [Concomitant]
  2. LEVITRA [Suspect]
     Indication: ERECTILE DYSFUNCTION
     Dosage: 5 MG, UNK
     Route: 048
     Dates: end: 20110201

REACTIONS (1)
  - ERECTILE DYSFUNCTION [None]
